FAERS Safety Report 17645701 (Version 3)
Quarter: 2020Q3

REPORT INFORMATION
  Report Type: Spontaneous
  Country: JP (occurrence: JP)
  Receive Date: 20200408
  Receipt Date: 20200707
  Transmission Date: 20201102
  Serious: Yes (Hospitalization, Other)
  Sender: FDA-Public Use
  Company Number: JP-ACCORD-178405

PATIENT
  Age: 80 Year
  Sex: Female
  Weight: 52.2 kg

DRUGS (8)
  1. DONEPEZIL/DONEPEZIL HYDROCHLORIDE [Suspect]
     Active Substance: DONEPEZIL HYDROCHLORIDE
     Indication: DEMENTIA ALZHEIMER^S TYPE
     Dosage: ON THE 24TH DAY, AFTER BREAKFAST (7DAYS), DISSOLVING TABLET
     Route: 048
     Dates: start: 20180626, end: 20180707
  2. AMANTADINE. [Interacting]
     Active Substance: AMANTADINE HYDROCHLORIDE
     Indication: CEREBRAL INFARCTION
  3. DONEPEZIL. [Interacting]
     Active Substance: DONEPEZIL
     Indication: ABULIA
     Dosage: ON THE 24TH DAY
  4. EDARAVONE [Concomitant]
     Active Substance: EDARAVONE
     Dosage: NASOGASTRIC TUBE
     Route: 045
  5. APIXABAN [Concomitant]
     Active Substance: APIXABAN
     Dosage: NASOGASTRIC TUBE
     Route: 045
  6. DONEPEZIL. [Interacting]
     Active Substance: DONEPEZIL
     Indication: DEMENTIA ALZHEIMER^S TYPE
     Dosage: ON THE 16TH DAY
  7. HEPARIN [Concomitant]
     Active Substance: HEPARIN SODIUM
     Dosage: NASOGASTRIC TUBE
     Route: 045
  8. AMANTADINE. [Interacting]
     Active Substance: AMANTADINE HYDROCHLORIDE
     Indication: ABULIA
     Dosage: AFTER MEALS
     Dates: start: 20180626, end: 20180718

REACTIONS (10)
  - Tachycardia [Recovered/Resolved]
  - Musculoskeletal stiffness [Recovered/Resolved]
  - Myoclonus [Recovered/Resolved]
  - Pyrexia [Recovered/Resolved]
  - Overdose [Unknown]
  - Drug level increased [Recovered/Resolved]
  - Extrapyramidal disorder [Recovered/Resolved]
  - Dyskinesia [Recovered/Resolved]
  - Drug interaction [Unknown]
  - Paratonia [Recovered/Resolved]

NARRATIVE: CASE EVENT DATE: 20180626
